FAERS Safety Report 23540096 (Version 1)
Quarter: 2024Q1

REPORT INFORMATION
  Report Type: Spontaneous
  Country: VN (occurrence: None)
  Receive Date: 20240219
  Receipt Date: 20240219
  Transmission Date: 20240410
  Serious: Yes (Hospitalization)
  Sender: FDA-Public Use
  Company Number: 2024A041344

PATIENT
  Age: 48 Year
  Sex: Female

DRUGS (6)
  1. ESOMEPRAZOLE [Interacting]
     Active Substance: ESOMEPRAZOLE
     Indication: Gastritis
     Route: 048
  2. ESOMEPRAZOLE [Interacting]
     Active Substance: ESOMEPRAZOLE
     Indication: Abdominal distension
     Route: 048
  3. ESOMEPRAZOLE [Interacting]
     Active Substance: ESOMEPRAZOLE
     Indication: Gastritis
     Route: 048
  4. ESOMEPRAZOLE [Interacting]
     Active Substance: ESOMEPRAZOLE
     Indication: Abdominal distension
     Route: 048
  5. DOMPERIDONE [Interacting]
     Active Substance: DOMPERIDONE
     Indication: Gastritis
  6. DOMPERIDONE [Interacting]
     Active Substance: DOMPERIDONE
     Indication: Abdominal distension

REACTIONS (8)
  - Drug interaction [Unknown]
  - Extrapyramidal disorder [Recovered/Resolved]
  - Gene mutation [Unknown]
  - Tremor [Recovered/Resolved]
  - Dyskinesia [Recovered/Resolved]
  - Mastication disorder [Recovered/Resolved]
  - Speech disorder [Recovered/Resolved]
  - Dysphagia [Recovered/Resolved]
